FAERS Safety Report 8853425 (Version 3)
Quarter: 2014Q1

REPORT INFORMATION
  Report Type: Spontaneous
  Country: CA (occurrence: CA)
  Receive Date: 20121022
  Receipt Date: 20140217
  Transmission Date: 20141002
  Serious: Yes (Hospitalization)
  Sender: FDA-Public Use
  Company Number: CA-GLAXOSMITHKLINE-A0927055A

PATIENT
  Sex: Male
  Weight: 60 kg

DRUGS (11)
  1. ADVAIR DISKUS [Suspect]
     Indication: CHRONIC OBSTRUCTIVE PULMONARY DISEASE
     Dosage: 1PUFF TWICE PER DAY
     Route: 055
     Dates: start: 2007
  2. ADVAIR HFA [Suspect]
     Indication: CHRONIC OBSTRUCTIVE PULMONARY DISEASE
     Dosage: 2PUFF TWICE PER DAY
     Route: 055
     Dates: start: 2007
  3. VENTOLIN [Concomitant]
  4. FLOVENT [Concomitant]
  5. CYMBALTA [Concomitant]
  6. ATROVENT [Concomitant]
     Route: 065
  7. TRAMACET [Concomitant]
     Dosage: 2TAB SIX TIMES PER DAY
  8. HYZAAR [Concomitant]
     Dosage: .5TAB IN THE MORNING
  9. AMLODIPINE [Concomitant]
  10. SPIRIVA [Concomitant]
  11. OXYGEN [Concomitant]

REACTIONS (12)
  - Dyspnoea [Recovered/Resolved]
  - Drug ineffective [Unknown]
  - Overdose [Unknown]
  - Product quality issue [Unknown]
  - Tooth loss [Unknown]
  - Pain [Unknown]
  - Aortic aneurysm [Unknown]
  - Aphonia [Unknown]
  - Dry mouth [Unknown]
  - Oral discomfort [Not Recovered/Not Resolved]
  - Tooth fracture [Not Recovered/Not Resolved]
  - Scoliosis [Not Recovered/Not Resolved]
